FAERS Safety Report 7296189-X (Version None)
Quarter: 2011Q1

REPORT INFORMATION
  Report Type: 
  Country: None (occurrence: None)
  Receive Date: 20110216
  Receipt Date: 20110210
  Transmission Date: 20110831
  Serious: Yes (Death, Life-Threatening, Other)
  Sender: FDA-Public Use
  Company Number: JP-JNJFOC-20101100190

PATIENT
  Sex: Female
  Weight: 59 kg

DRUGS (12)
  1. DIAZEPAM [Concomitant]
     Indication: SCHIZOPHRENIA
     Route: 042
  2. DOXORUBICIN HCL [Suspect]
     Indication: OVARIAN CANCER RECURRENT
     Dosage: CYCLE 1
     Route: 042
  3. MEDLENIK [Concomitant]
     Route: 042
  4. FULCALIQ 3 [Concomitant]
     Route: 042
  5. RAMELTEON [Concomitant]
     Indication: PROPHYLAXIS
     Route: 042
  6. FUROSEMIDE [Concomitant]
     Route: 042
  7. INTRALIPID 10% [Concomitant]
     Route: 042
  8. NEUPHAGEN [Concomitant]
     Route: 042
  9. SANDOSTATIN [Concomitant]
     Indication: BREAST NEOPLASM
     Route: 042
  10. LINTON [Concomitant]
     Indication: SCHIZOPHRENIA
     Route: 042
  11. FUROSEMIDE [Concomitant]
     Route: 042
  12. FAMOTIDINE [Concomitant]
     Route: 042

REACTIONS (5)
  - HEPATIC FUNCTION ABNORMAL [None]
  - SEPSIS [None]
  - OVARIAN CANCER [None]
  - NEUTROPENIA [None]
  - FEBRILE NEUTROPENIA [None]
